FAERS Safety Report 15331894 (Version 1)
Quarter: 2018Q3

REPORT INFORMATION
  Report Type: Report from Study
  Country: NL (occurrence: NL)
  Receive Date: 20180829
  Receipt Date: 20180829
  Transmission Date: 20181010
  Serious: Yes (Hospitalization)
  Sender: FDA-Public Use
  Company Number: PHHO2018NL009390

PATIENT
  Age: 62 Year
  Sex: Male
  Weight: 79 kg

DRUGS (3)
  1. GEMCITABINE [Suspect]
     Active Substance: GEMCITABINE\GEMCITABINE HYDROCHLORIDE
     Indication: PANCREATIC CARCINOMA
     Dosage: 1000 MG/M2, 2X / 4 WEEKS
     Route: 042
     Dates: start: 20180515, end: 20180813
  2. ABRAXANE [Suspect]
     Active Substance: PACLITAXEL
     Indication: PANCREATIC CARCINOMA
     Dosage: 125 MG/M2, 2X / 4 WEEKS
     Route: 042
     Dates: start: 20180515, end: 20180813
  3. LDE 225 [Suspect]
     Active Substance: ERISMODEGIB
     Indication: PANCREATIC CARCINOMA
     Dosage: 200 MG, QD
     Route: 048
     Dates: start: 20180515

REACTIONS (1)
  - Cholecystitis [Not Recovered/Not Resolved]

NARRATIVE: CASE EVENT DATE: 20180814
